FAERS Safety Report 7411809-4 (Version None)
Quarter: 2011Q2

REPORT INFORMATION
  Report Type: 
  Country: None (occurrence: None)
  Receive Date: 20110413
  Receipt Date: 20110127
  Transmission Date: 20111010
  Serious: Yes (Other)
  Sender: FDA-Public Use
  Company Number: US-BRISTOL-MYERS SQUIBB COMPANY-15516065

PATIENT
  Sex: Male

DRUGS (4)
  1. FOLINIC ACID [Concomitant]
     Dates: end: 20101201
  2. ERBITUX [Suspect]
     Dosage: RECEIVED 20MG
     Route: 042
     Dates: start: 20101201
  3. IRINOTECAN [Concomitant]
     Dates: end: 20101201
  4. FLUOROURACIL [Concomitant]
     Dates: end: 20101201

REACTIONS (2)
  - PHARYNGEAL OEDEMA [None]
  - DYSPNOEA [None]
